FAERS Safety Report 8576131-1 (Version None)
Quarter: 2012Q3

REPORT INFORMATION
  Report Type: 
  Country: None (occurrence: None)
  Receive Date: 20120725
  Receipt Date: 20120710
  Transmission Date: 20120928
  Serious: Yes (Other)
  Sender: FDA-Public Use
  Company Number: 2012SGN00254

PATIENT

DRUGS (1)
  1. ADCETRIS [Suspect]
     Indication: NON-HODGKIN'S LYMPHOMA RECURRENT
     Dates: start: 20111202, end: 20120101

REACTIONS (2)
  - PANCYTOPENIA [None]
  - ANAPHYLACTIC REACTION [None]
